FAERS Safety Report 8784127 (Version 1)
Quarter: 2012Q4

REPORT INFORMATION
  Report Type: 
  Country: US (occurrence: US)
  Receive Date: 20120913
  Receipt Date: 20120913
  Transmission Date: 20130627
  Serious: No
  Sender: FDA-Public Use
  Company Number: US-VERTEX PHARMACEUTICAL INC.-AE-2012-009517

PATIENT
  Age: 60 Year
  Sex: Female
  Weight: 90.91 kg

DRUGS (4)
  1. INCIVEK [Suspect]
     Indication: HEPATITIS C
     Route: 048
  2. ZOFRAN [Concomitant]
  3. INSULIN [Concomitant]
  4. COMPAZINE [Concomitant]

REACTIONS (1)
  - Incorrect dose administered [Recovered/Resolved]
